FAERS Safety Report 25412415 (Version 1)
Quarter: 2025Q2

REPORT INFORMATION
  Report Type: Spontaneous
  Country: US (occurrence: None)
  Receive Date: 20250606
  Receipt Date: 20250606
  Transmission Date: 20250717
  Serious: Yes (Hospitalization, Disabling)
  Sender: FDA-CTU
  Company Number: None

PATIENT
  Age: 85 Year
  Sex: Female
  Weight: 72.9 kg

DRUGS (17)
  1. DULOXETINE [Suspect]
     Active Substance: DULOXETINE
     Indication: Pain
     Dosage: OTHER QUANTITY : 1 CAPSULE(S);?FREQUENCY : DAILY;?
     Route: 048
     Dates: start: 20240422, end: 20240714
  2. GEMCITABINE [Suspect]
     Active Substance: GEMCITABINE
  3. DIGOXIN [Concomitant]
     Active Substance: DIGOXIN
  4. ELIQUIS [Concomitant]
     Active Substance: APIXABAN
  5. LASIX [Concomitant]
     Active Substance: FUROSEMIDE
  6. LOSARTAN [Concomitant]
     Active Substance: LOSARTAN
  7. METOPROLOL TARTRATE [Concomitant]
     Active Substance: METOPROLOL TARTRATE
  8. POLYETHYLENE GLYCOL [Concomitant]
     Active Substance: POLYETHYLENE GLYCOL
  9. OMEPRAZOLE [Concomitant]
     Active Substance: OMEPRAZOLE
  10. TRIAMCINOLONE ACETONIDE [Concomitant]
     Active Substance: TRIAMCINOLONE ACETONIDE
  11. Hearing aids [Concomitant]
  12. glasses [Concomitant]
  13. VITAMIN D [Concomitant]
     Active Substance: VITAMIN D NOS
  14. BENADRYL [Concomitant]
     Active Substance: DIPHENHYDRAMINE HYDROCHLORIDE
  15. lortadine OTC eye drops [Concomitant]
  16. BACITRACIN [Concomitant]
     Active Substance: BACITRACIN
  17. HYDROCORTISONE [Concomitant]
     Active Substance: HYDROCORTISONE

REACTIONS (21)
  - Off label use [None]
  - Insomnia [None]
  - Myalgia [None]
  - Arthralgia [None]
  - Fatigue [None]
  - Somnolence [None]
  - Peroneal nerve palsy [None]
  - Gait disturbance [None]
  - Dysstasia [None]
  - Withdrawal syndrome [None]
  - Electric shock sensation [None]
  - Nightmare [None]
  - Diplopia [None]
  - Weight increased [None]
  - Gastrooesophageal reflux disease [None]
  - Hepatic enzyme increased [None]
  - Pancreatitis acute [None]
  - Hypersensitivity [None]
  - Cellulitis [None]
  - Fluid retention [None]
  - Skin exfoliation [None]

NARRATIVE: CASE EVENT DATE: 20241005
